FAERS Safety Report 23821747 (Version 1)
Quarter: 2024Q2

REPORT INFORMATION
  Report Type: Spontaneous
  Country: CN (occurrence: CN)
  Receive Date: 20240506
  Receipt Date: 20240506
  Transmission Date: 20240716
  Serious: Yes (Other)
  Sender: FDA-Public Use
  Company Number: None

PATIENT
  Age: 61 Year
  Sex: Female
  Weight: 51 kg

DRUGS (5)
  1. MANNITOL [Suspect]
     Active Substance: MANNITOL
     Indication: Headache
     Dosage: (TRADE NAME: BAIWEIAN), (DOSAGE FORM: INJECTION) 100 ML ONCE DAILY
     Route: 041
     Dates: start: 20240416, end: 20240423
  2. MANNITOL [Suspect]
     Active Substance: MANNITOL
     Indication: Reduction of increased intracranial pressure
  3. SODIUM CHLORIDE [Suspect]
     Active Substance: SODIUM CHLORIDE
     Indication: Medication dilution
     Dosage: 250 ML USED TO DILUTE 0.8 G IBUPROFEN
     Route: 041
     Dates: start: 20240416, end: 20240423
  4. IBUPROFEN [Suspect]
     Active Substance: IBUPROFEN
     Indication: Foot fracture
     Dosage: 0.8 G ONCE DAILY DILUTED WITH 250 ML OF SODIUM CHLORIDE
     Route: 041
     Dates: start: 20240416, end: 20240423
  5. IBUPROFEN [Suspect]
     Active Substance: IBUPROFEN
     Indication: Analgesic therapy

REACTIONS (4)
  - Dermatitis allergic [Unknown]
  - Erythema [Unknown]
  - Rash [Recovering/Resolving]
  - Pruritus [Recovering/Resolving]

NARRATIVE: CASE EVENT DATE: 20240419
